FAERS Safety Report 17278438 (Version 3)
Quarter: 2020Q3

REPORT INFORMATION
  Report Type: Report from Study
  Country: US (occurrence: US)
  Receive Date: 20200116
  Receipt Date: 20200716
  Transmission Date: 20201102
  Serious: Yes (Death, Hospitalization)
  Sender: FDA-Public Use
  Company Number: NVSC2020US008690

PATIENT
  Age: 69 Year
  Sex: Female
  Weight: 43.45 kg

DRUGS (5)
  1. PYRAZINAMIDE. [Concomitant]
     Active Substance: PYRAZINAMIDE
     Indication: TUBERCULOSIS
     Dosage: 1000 MG
     Route: 065
     Dates: start: 20190701, end: 20191114
  2. LAMPRENE [Suspect]
     Active Substance: CLOFAZIMINE
     Indication: TUBERCULOSIS
     Dosage: 100 MG, QD
     Route: 048
     Dates: start: 20190909, end: 20191114
  3. CYCLOSERINE. [Concomitant]
     Active Substance: CYCLOSERINE
     Indication: TUBERCULOSIS
     Dosage: 500 MG
     Route: 065
     Dates: start: 20190701, end: 20191114
  4. MOXIFLOXACIN. [Concomitant]
     Active Substance: MOXIFLOXACIN
     Indication: TUBERCULOSIS
     Dosage: 400 MG
     Route: 065
     Dates: start: 20190701, end: 20191114
  5. LINEZOLID. [Concomitant]
     Active Substance: LINEZOLID
     Indication: TUBERCULOSIS
     Dosage: 600 MG
     Route: 065
     Dates: start: 20190701, end: 20191114

REACTIONS (7)
  - Chest pain [Fatal]
  - Cardiac failure congestive [Fatal]
  - Pleural effusion [Fatal]
  - Asthenia [Fatal]
  - Fatigue [Fatal]
  - Dyspnoea [Fatal]
  - Pulmonary tuberculosis [Fatal]

NARRATIVE: CASE EVENT DATE: 20191108
